FAERS Safety Report 6795150-9 (Version None)
Quarter: 2010Q2

REPORT INFORMATION
  Report Type: 
  Country: None (occurrence: None)
  Receive Date: 20100625
  Receipt Date: 20100625
  Transmission Date: 20101027
  Serious: Yes (Hospitalization)
  Sender: FDA-Public Use
  Company Number: PHHO2008US03911

PATIENT
  Sex: Female
  Weight: 61.3 kg

DRUGS (1)
  1. AFINITOR [Suspect]
     Indication: PANCREATIC NEUROENDOCRINE TUMOUR
     Dosage: 10 MG DAILY
     Route: 048
     Dates: start: 20080117, end: 20080227

REACTIONS (18)
  - ABDOMINAL DISTENSION [None]
  - AORTIC STENOSIS [None]
  - AORTIC VALVE CALCIFICATION [None]
  - ASCITES [None]
  - ATRIAL PRESSURE INCREASED [None]
  - CARDIAC VALVE DISEASE [None]
  - DILATATION ATRIAL [None]
  - DILATATION VENTRICULAR [None]
  - GENERALISED OEDEMA [None]
  - HYPERVOLAEMIA [None]
  - MITRAL VALVE INCOMPETENCE [None]
  - OEDEMA PERIPHERAL [None]
  - PERICARDIAL EFFUSION [None]
  - PULMONARY HYPERTENSION [None]
  - RIGHT VENTRICULAR DYSFUNCTION [None]
  - RIGHT VENTRICULAR FAILURE [None]
  - TRICUSPID VALVE INCOMPETENCE [None]
  - VENTRICULAR HYPOKINESIA [None]
